FAERS Safety Report 4479924-5 (Version None)
Quarter: 2004Q3

REPORT INFORMATION
  Report Type: 
  Country: None (occurrence: None)
  Receive Date: 20040923
  Receipt Date: 20040609
  Transmission Date: 20050211
  Serious: No
  Sender: FDA-Public Use
  Company Number: USA040669744

PATIENT
  Sex: Female

DRUGS (1)
  1. FORTEO [Suspect]
     Indication: OSTEOPOROSIS
     Dosage: 20 UG DAY
     Dates: start: 20040521

REACTIONS (5)
  - BALANCE DISORDER [None]
  - FATIGUE [None]
  - HEADACHE [None]
  - MUSCLE CRAMP [None]
  - NAUSEA [None]
